FAERS Safety Report 4676008-8 (Version None)
Quarter: 2005Q2

REPORT INFORMATION
  Report Type: 
  Country: None (occurrence: None)
  Receive Date: 20050527
  Receipt Date: 20050425
  Transmission Date: 20051028
  Serious: No
  Sender: FDA-Public Use
  Company Number: US-GLAXOSMITHKLINE-A0555598A

PATIENT
  Age: 54 Year
  Sex: Female

DRUGS (7)
  1. WELLBUTRIN [Suspect]
     Indication: HEADACHE
     Dosage: 150MG PER DAY
     Route: 048
     Dates: start: 20050412
  2. EFFEXOR [Suspect]
  3. CLARINEX [Concomitant]
  4. NASONEX [Concomitant]
  5. ZANTAC [Concomitant]
  6. VITAMIN B COMPLEX CAP [Concomitant]
  7. VIT C TAB [Concomitant]

REACTIONS (1)
  - HEADACHE [None]
